FAERS Safety Report 25614321 (Version 3)
Quarter: 2025Q3

REPORT INFORMATION
  Report Type: Spontaneous
  Country: US (occurrence: US)
  Receive Date: 20250728
  Receipt Date: 20250814
  Transmission Date: 20251020
  Serious: No
  Sender: BIOGEN
  Company Number: US-BIOGEN-2025BI01318254

PATIENT
  Sex: Female

DRUGS (1)
  1. SPINRAZA [Suspect]
     Active Substance: NUSINERSEN
     Indication: Spinal muscular atrophy
     Route: 050

REACTIONS (6)
  - Asthenia [Not Recovered/Not Resolved]
  - Drug ineffective [Unknown]
  - Learning disability [Unknown]
  - Feeding disorder [Unknown]
  - Device infusion issue [Unknown]
  - Product container issue [Unknown]
